FAERS Safety Report 9596870 (Version 1)
Quarter: 2013Q4

REPORT INFORMATION
  Report Type: Spontaneous
  Country: DE (occurrence: DE)
  Receive Date: 20131004
  Receipt Date: 20131004
  Transmission Date: 20140711
  Serious: Yes (Hospitalization)
  Sender: FDA-Public Use
  Company Number: GXKR2013DE003172

PATIENT
  Age: 63 Year
  Sex: Female
  Weight: 86 kg

DRUGS (5)
  1. CARBOPLATIN [Suspect]
     Indication: OVARIAN CANCER
     Dosage: 600 MG, UNK (FROM 09:00 PM - 09:45 PM)
     Route: 042
     Dates: start: 20130910
  2. PACLITAXEL [Concomitant]
     Indication: OVARIAN CANCER
     Dosage: 300 MG, UNK (FROM 5:15 PM - 8:35 PM)
     Route: 042
  3. DEXAMETHASONE [Concomitant]
     Indication: PROPHYLAXIS
     Dosage: 20 MG, UNK (AT 3:40 PM)
     Route: 042
  4. TAVEGIL//CLEMASTINE [Concomitant]
     Indication: PROPHYLAXIS
     Dosage: 2 MG, UNK (AT 04:10 PM)
     Route: 042
  5. RANITIDIN [Concomitant]
     Indication: PROPHYLAXIS
     Dosage: 50 MG, UNK (AT 04:16 PM)
     Route: 042

REACTIONS (4)
  - Anxiety [Recovered/Resolved]
  - Feeling hot [Recovered/Resolved]
  - Petechiae [Recovered/Resolved]
  - Erythema [Recovered/Resolved]
